FAERS Safety Report 8252596-X (Version None)
Quarter: 2012Q2

REPORT INFORMATION
  Report Type: 
  Country: None (occurrence: None)
  Receive Date: 20120402
  Receipt Date: 20111118
  Transmission Date: 20120825
  Serious: No
  Sender: FDA-Public Use
  Company Number: US-ABBOTT-11P-163-0875652-00

PATIENT
  Sex: Male

DRUGS (3)
  1. SEROQUEL [Concomitant]
     Indication: DEPRESSION
  2. ANDROGEL [Suspect]
     Indication: DEPRESSION
     Route: 062
     Dates: start: 20111103
  3. ANDROGEL [Suspect]
     Indication: SLEEP DISORDER

REACTIONS (2)
  - DRUG DOSE OMISSION [None]
  - OFF LABEL USE [None]
